FAERS Safety Report 9570888 (Version 1)
Quarter: 2013Q3

REPORT INFORMATION
  Report Type: Spontaneous
  Country: US (occurrence: None)
  Receive Date: 20130927
  Receipt Date: 20130927
  Transmission Date: 20140515
  Serious: Yes (Death)
  Sender: FDA-Public Use
  Company Number: None

PATIENT
  Age: 40 Year
  Sex: Male

DRUGS (2)
  1. EPZICOM [Suspect]
     Indication: HIV INFECTION
     Dosage: 1 TABLET DAILY ORAL
     Route: 048
     Dates: start: 20101011, end: 20110106
  2. NEVIRAPINE [Suspect]
     Indication: HIV INFECTION
     Dosage: 2 TABLETS DAILY ORAL
     Route: 048
     Dates: start: 20101011, end: 20110208

REACTIONS (1)
  - Intracranial aneurysm [None]
